FAERS Safety Report 22043871 (Version 3)
Quarter: 2023Q1

REPORT INFORMATION
  Report Type: Spontaneous
  Country: JP (occurrence: JP)
  Receive Date: 20230228
  Receipt Date: 20230331
  Transmission Date: 20230417
  Serious: Yes (Hospitalization)
  Sender: FDA-Public Use
  Company Number: JP-BAYER-2023A023391

PATIENT
  Age: 70 Year
  Sex: Female

DRUGS (9)
  1. EYLEA [Suspect]
     Active Substance: AFLIBERCEPT
     Indication: Age-related macular degeneration
     Dosage: 2MG; PER INJECTION, SOLUTION FOR INJECTION IN PRE-FILLED SYRINGE, STRENGTH : 40MG/ML
     Dates: start: 202103
  2. VONOPRAZAN FUMARATE [Concomitant]
     Active Substance: VONOPRAZAN FUMARATE
     Indication: Prophylaxis
     Dosage: DAILY DOSE 10 MG
     Dates: start: 202109
  3. ELDECALCITOL [Concomitant]
     Active Substance: ELDECALCITOL
     Indication: Prophylaxis
     Dosage: DAILY DOSE 75 ?G
     Dates: start: 202109
  4. CILNIDIPINE [Concomitant]
     Active Substance: CILNIDIPINE
     Indication: Hypertension
     Dosage: DAILY DOSE 10 MG
  5. DIOVAN [Concomitant]
     Active Substance: VALSARTAN
     Indication: Hypertension
     Dosage: DAILY DOSE 40 MG
  6. PREDONINE [Concomitant]
     Active Substance: PREDNISOLONE
     Indication: Vasculitis
     Dosage: DAILY DOSE 30 MG
     Dates: start: 202109
  7. PREDONINE [Concomitant]
     Active Substance: PREDNISOLONE
     Indication: Skin ulcer
     Dosage: DAILY DOSE 50 MG AT A HIGH DOSE
  8. PREDONINE [Concomitant]
     Active Substance: PREDNISOLONE
     Dosage: DAILY DOSE 3 MG
  9. ALENDRONATE SODIUM [Concomitant]
     Active Substance: ALENDRONATE SODIUM
     Indication: Prophylaxis
     Dosage: 35 MG, OW
     Dates: start: 202109

REACTIONS (3)
  - Skin ulcer [Not Recovered/Not Resolved]
  - Peripheral swelling [Unknown]
  - Graft complication [Not Recovered/Not Resolved]

NARRATIVE: CASE EVENT DATE: 20210901
